FAERS Safety Report 7601458-7 (Version None)
Quarter: 2011Q3

REPORT INFORMATION
  Report Type: 
  Country: None (occurrence: None)
  Receive Date: 20110711
  Receipt Date: 20110705
  Transmission Date: 20111222
  Serious: Yes (Other)
  Sender: FDA-Public Use
  Company Number: US-PFIZER INC-2011150359

PATIENT
  Sex: Female

DRUGS (2)
  1. DEPO-PROVERA [Suspect]
     Indication: OFF LABEL USE
     Dosage: UNK
  2. DEPO-PROVERA [Suspect]
     Indication: MENORRHAGIA

REACTIONS (11)
  - WEIGHT INCREASED [None]
  - HORMONE LEVEL ABNORMAL [None]
  - CRYING [None]
  - PREMENSTRUAL SYNDROME [None]
  - MENSTRUAL DISORDER [None]
  - EMOTIONAL DISORDER [None]
  - HYPERTENSION [None]
  - DRUG INEFFECTIVE FOR UNAPPROVED INDICATION [None]
  - CONDITION AGGRAVATED [None]
  - AGGRESSION [None]
  - MOOD ALTERED [None]
